FAERS Safety Report 14371387 (Version 2)
Quarter: 2018Q1

REPORT INFORMATION
  Report Type: Report from Study
  Country: BR (occurrence: BR)
  Receive Date: 20180110
  Receipt Date: 20180125
  Transmission Date: 20180509
  Serious: No
  Sender: FDA-Public Use
  Company Number: PHHY2018BR001335

PATIENT
  Age: 65 Year
  Sex: Female
  Weight: 67.4 kg

DRUGS (6)
  1. ENALAPRIL [Concomitant]
     Active Substance: ENALAPRIL
     Indication: HYPERTENSION
     Dosage: 2 DF, QD
     Route: 048
     Dates: start: 2010
  2. ATENOLOL. [Concomitant]
     Active Substance: ATENOLOL
     Indication: HYPERTENSION
     Dosage: 2 DF, QD
     Route: 048
     Dates: start: 2010
  3. ACLASTA [Suspect]
     Active Substance: ZOLEDRONIC ACID
     Indication: CALCIUM DEFICIENCY
     Dosage: 1 DF, Q12MO
     Route: 042
     Dates: start: 20160817
  4. LEVOTHYROXINE. [Concomitant]
     Active Substance: LEVOTHYROXINE
     Indication: HYPOTHYROIDISM
     Dosage: 1 DF, QD
     Route: 065
     Dates: start: 2010
  5. ASA [Concomitant]
     Active Substance: ASPIRIN
     Indication: HYPERTENSION
     Dosage: 1 DF, QD
     Route: 065
     Dates: start: 2010
  6. SIMVASTATIN. [Concomitant]
     Active Substance: SIMVASTATIN
     Indication: BLOOD CHOLESTEROL INCREASED
     Dosage: 1 DF, QD
     Route: 048
     Dates: start: 2010

REACTIONS (5)
  - Gait inability [Recovering/Resolving]
  - Pain in extremity [Recovering/Resolving]
  - Product use in unapproved indication [Unknown]
  - Malaise [Unknown]
  - Exostosis [Recovering/Resolving]

NARRATIVE: CASE EVENT DATE: 201709
